FAERS Safety Report 18310938 (Version 1)
Quarter: 2020Q3

REPORT INFORMATION
  Report Type: Report from Study
  Country: None (occurrence: US)
  Receive Date: 20200924
  Receipt Date: 20200924
  Transmission Date: 20201103
  Serious: Yes (Other)
  Sender: FDA-Public Use
  Company Number: US-ABBVIE-20K-163-3227804-00

PATIENT
  Age: 67 Year
  Sex: Female
  Weight: 61.74 kg

DRUGS (9)
  1. HUMIRA [Suspect]
     Active Substance: ADALIMUMAB
     Dosage: CITRATE FREE
     Route: 058
     Dates: start: 201911
  2. LEVOTHYROXINE. [Concomitant]
     Active Substance: LEVOTHYROXINE
     Indication: THYROID DISORDER
  3. HUMIRA [Suspect]
     Active Substance: ADALIMUMAB
     Dosage: CITRATE FREE
     Route: 058
     Dates: start: 202002
  4. PROBIOTICS NOS [Concomitant]
     Active Substance: PROBIOTICS NOS
     Indication: SUPPLEMENTATION THERAPY
  5. IMODIUM [Concomitant]
     Active Substance: LOPERAMIDE HYDROCHLORIDE
     Indication: DIARRHOEA
  6. PYRIDIUM [Concomitant]
     Active Substance: PHENAZOPYRIDINE
     Indication: BLADDER PAIN
  7. HUMIRA [Suspect]
     Active Substance: ADALIMUMAB
     Indication: CROHN^S DISEASE
     Dosage: CITRATE FREE
     Route: 058
     Dates: start: 20190605, end: 201910
  8. CHOLESTYRAMINE. [Concomitant]
     Active Substance: CHOLESTYRAMINE
     Indication: PRODUCT USED FOR UNKNOWN INDICATION
  9. RIFAXIMIN. [Concomitant]
     Active Substance: RIFAXIMIN
     Indication: INFECTION

REACTIONS (16)
  - Flatulence [Unknown]
  - COVID-19 [Unknown]
  - Anger [Unknown]
  - Vomiting [Not Recovered/Not Resolved]
  - Crohn^s disease [Recovering/Resolving]
  - Malaise [Not Recovered/Not Resolved]
  - Abdominal distension [Recovering/Resolving]
  - Depressed mood [Recovered/Resolved]
  - Urinary tract infection [Recovered/Resolved]
  - Large intestinal stenosis [Recovering/Resolving]
  - Gastric infection [Recovered/Resolved]
  - Anxiety [Recovered/Resolved]
  - Abdominal discomfort [Recovered/Resolved]
  - Urinary tract infection [Unknown]
  - Nausea [Not Recovered/Not Resolved]
  - Muscle spasms [Not Recovered/Not Resolved]

NARRATIVE: CASE EVENT DATE: 201911
